FAERS Safety Report 21926563 (Version 1)
Quarter: 2023Q1

REPORT INFORMATION
  Report Type: Spontaneous
  Country: SE (occurrence: SE)
  Receive Date: 20230130
  Receipt Date: 20230130
  Transmission Date: 20230417
  Serious: Yes (Disabling)
  Sender: FDA-Public Use
  Company Number: None

PATIENT
  Age: 43 Year
  Sex: Female

DRUGS (3)
  1. EMGALITY [Suspect]
     Active Substance: GALCANEZUMAB-GNLM
     Indication: Migraine
     Dosage: UNK UNK, UNKNOWN
     Route: 058
     Dates: start: 20220131, end: 20221222
  2. ORUDIS [KETOPROFEN] [Concomitant]
     Indication: Product used for unknown indication
     Dosage: 200 MG, 1 CAPSULE/DAY
     Route: 048
     Dates: start: 2016
  3. AMITRIPTYLINE [Concomitant]
     Active Substance: AMITRIPTYLINE
     Indication: Product used for unknown indication
     Dosage: 10 MG 3 TABLETS 1 TIME/DAY
     Route: 048
     Dates: start: 20171001

REACTIONS (3)
  - Deafness transitory [Unknown]
  - Ear discomfort [Unknown]
  - Tinnitus [Not Recovered/Not Resolved]

NARRATIVE: CASE EVENT DATE: 20220303
